FAERS Safety Report 7559783-4 (Version None)
Quarter: 2011Q2

REPORT INFORMATION
  Report Type: 
  Country: None (occurrence: None)
  Receive Date: 20110617
  Receipt Date: 20110617
  Transmission Date: 20111010
  Serious: Yes (Other)
  Sender: FDA-Public Use
  Company Number: None

PATIENT
  Age: 50 Year
  Sex: Male
  Weight: 74.8435 kg

DRUGS (1)
  1. ZYRTEC [Suspect]
     Indication: PRURITUS
     Dosage: 5MG DAILY PO
     Route: 048
     Dates: start: 20060314, end: 20110608

REACTIONS (2)
  - PRURITUS GENERALISED [None]
  - HYPERSENSITIVITY [None]
